FAERS Safety Report 25479137 (Version 1)
Quarter: 2025Q2

REPORT INFORMATION
  Report Type: Report from Study
  Country: US (occurrence: US)
  Receive Date: 20250625
  Receipt Date: 20250625
  Transmission Date: 20250716
  Serious: Yes (Other)
  Sender: ABBVIE
  Company Number: US-ABBVIE-6338933

PATIENT
  Sex: Female

DRUGS (1)
  1. HUMIRA [Suspect]
     Active Substance: ADALIMUMAB
     Indication: Product used for unknown indication
     Route: 058
     Dates: start: 20050101

REACTIONS (6)
  - Gastric haemorrhage [Unknown]
  - Basal cell carcinoma [Unknown]
  - Pneumonia [Unknown]
  - Amnesia [Unknown]
  - Weight decreased [Unknown]
  - Cardiac disorder [Unknown]
